FAERS Safety Report 10726687 (Version 2)
Quarter: 2015Q1

REPORT INFORMATION
  Report Type: Spontaneous
  Country: US (occurrence: US)
  Receive Date: 20150121
  Receipt Date: 20150123
  Transmission Date: 20150721
  Serious: Yes (Other)
  Sender: FDA-Public Use
  Company Number: US-SHIRE-US201500249

PATIENT
  Age: 9 Year
  Sex: Male
  Weight: 50.34 kg

DRUGS (9)
  1. FLUOXETINE [Suspect]
     Active Substance: FLUOXETINE\FLUOXETINE HYDROCHLORIDE
     Dosage: 10 MG, 1X/DAY:QD (IN AM)
     Route: 048
     Dates: start: 20140824, end: 201412
  2. FLUOXETINE [Suspect]
     Active Substance: FLUOXETINE\FLUOXETINE HYDROCHLORIDE
     Dosage: 10 MG, 1X/DAY:QD
     Route: 048
     Dates: start: 201412, end: 20150109
  3. INTUNIV [Suspect]
     Active Substance: GUANFACINE HYDROCHLORIDE
     Dosage: 2 MG, 1X/DAY:QD
     Route: 048
     Dates: start: 20140819, end: 20150102
  4. FLUOXETINE [Suspect]
     Active Substance: FLUOXETINE\FLUOXETINE HYDROCHLORIDE
     Dosage: 5 MG, 1X/DAY:QD (IN PM)
     Route: 048
     Dates: start: 20140824, end: 201412
  5. CLARITIN [Concomitant]
     Active Substance: LORATADINE
     Indication: HYPERSENSITIVITY
     Dosage: 10 MG, 1X/DAY:QD
     Route: 048
     Dates: start: 2014, end: 201411
  6. FLUOXETINE [Suspect]
     Active Substance: FLUOXETINE\FLUOXETINE HYDROCHLORIDE
     Indication: ANXIETY
     Dosage: 15 MG, 1X/DAY:QD
     Route: 048
     Dates: start: 20140809, end: 20140823
  7. INTUNIV [Suspect]
     Active Substance: GUANFACINE HYDROCHLORIDE
     Indication: ATTENTION DEFICIT/HYPERACTIVITY DISORDER
     Dosage: 1 MG, 1X/DAY:QD
     Route: 048
     Dates: start: 20140812, end: 20140818
  8. FLUOXETINE [Suspect]
     Active Substance: FLUOXETINE\FLUOXETINE HYDROCHLORIDE
     Dosage: 10 MG, 1X/DAY:QD (IN AM)
     Route: 048
     Dates: start: 20150110
  9. FLUOXETINE [Suspect]
     Active Substance: FLUOXETINE\FLUOXETINE HYDROCHLORIDE
     Dosage: 5 MG, 1X/DAY:QD (IN PM)
     Route: 048
     Dates: start: 20150110

REACTIONS (14)
  - Disturbance in social behaviour [Not Recovered/Not Resolved]
  - Condition aggravated [Not Recovered/Not Resolved]
  - Logorrhoea [Not Recovered/Not Resolved]
  - Somnolence [Unknown]
  - Psychomotor hyperactivity [Not Recovered/Not Resolved]
  - Anxiety [Not Recovered/Not Resolved]
  - Bipolar disorder [Not Recovered/Not Resolved]
  - Decreased appetite [Unknown]
  - Insomnia [Not Recovered/Not Resolved]
  - Drug interaction [Unknown]
  - Cough [Recovered/Resolved]
  - Negativism [Not Recovered/Not Resolved]
  - Thirst [Not Recovered/Not Resolved]
  - Vomiting [Recovered/Resolved]

NARRATIVE: CASE EVENT DATE: 201408
